FAERS Safety Report 7004104-9 (Version None)
Quarter: 2010Q3

REPORT INFORMATION
  Report Type: 
  Country: None (occurrence: None)
  Receive Date: 20100920
  Receipt Date: 20100205
  Transmission Date: 20110219
  Serious: No
  Sender: FDA-Public Use
  Company Number: US-WYE-H13521510

PATIENT
  Sex: Male
  Weight: 127.12 kg

DRUGS (6)
  1. PRISTIQ [Suspect]
     Indication: DEPRESSION
     Route: 048
     Dates: start: 20100122, end: 20100203
  2. SEROQUEL [Concomitant]
  3. CONCERTA [Concomitant]
  4. LEVOXYL [Concomitant]
  5. LITHIUM [Concomitant]
  6. LEXAPRO [Concomitant]

REACTIONS (1)
  - ENURESIS [None]
